FAERS Safety Report 22117208 (Version 1)
Quarter: 2023Q1

REPORT INFORMATION
  Report Type: Spontaneous
  Country: GB (occurrence: GB)
  Receive Date: 20230320
  Receipt Date: 20230320
  Transmission Date: 20230417
  Serious: Yes (Other)
  Sender: FDA-Public Use
  Company Number: GB-MHRA-MED-202209161231265680-DFZTY

PATIENT
  Age: 9 Month
  Sex: Female

DRUGS (1)
  1. SYNAGIS [Suspect]
     Active Substance: PALIVIZUMAB
     Indication: Adverse drug reaction
     Dosage: 117MG MONTHLY (DOSE CHANGES WITH WEIGHT) ; ;120.0MG UNKNOWN
     Route: 030
     Dates: start: 20220726

REACTIONS (4)
  - Rash pruritic [Recovered/Resolved]
  - Erythema [Unknown]
  - Rash [Unknown]
  - Pruritus [Unknown]

NARRATIVE: CASE EVENT DATE: 20220915
